FAERS Safety Report 13120033 (Version 4)
Quarter: 2019Q3

REPORT INFORMATION
  Report Type: Spontaneous
  Country: US (occurrence: US)
  Receive Date: 20170117
  Receipt Date: 20190814
  Transmission Date: 20191004
  Serious: Yes (Death, Other)
  Sender: FDA-Public Use
  Company Number: US-ASTRAZENECA-2017SE02379

PATIENT
  Sex: Male
  Weight: 90.7 kg

DRUGS (30)
  1. NEXIUM [Suspect]
     Active Substance: ESOMEPRAZOLE MAGNESIUM
     Indication: PEPTIC ULCER
     Dosage: 40 MG
     Route: 048
     Dates: start: 2002
  2. NEXIUM [Suspect]
     Active Substance: ESOMEPRAZOLE MAGNESIUM
     Indication: PROPHYLAXIS AGAINST GASTROINTESTINAL ULCER
     Dosage: 40 MG
     Route: 048
     Dates: start: 2002
  3. NOVOLIN [Concomitant]
     Active Substance: INSULIN HUMAN
  4. NEXIUM [Suspect]
     Active Substance: ESOMEPRAZOLE MAGNESIUM
     Indication: GASTROOESOPHAGEAL REFLUX DISEASE
     Dosage: 40 MG
     Route: 048
     Dates: start: 2011, end: 2016
  5. CITALOPRAM [Concomitant]
     Active Substance: CITALOPRAM HYDROBROMIDE
  6. COREG [Concomitant]
     Active Substance: CARVEDILOL
  7. TAMSULOSIN [Concomitant]
     Active Substance: TAMSULOSIN
     Dosage: 0.4MG UNKNOWN
  8. IMDUR [Concomitant]
     Active Substance: ISOSORBIDE MONONITRATE
     Dates: start: 20140811
  9. CEFTIN [Concomitant]
     Active Substance: CEFUROXIME AXETIL
     Dates: start: 20140811
  10. ATORVASTATIN [Concomitant]
     Active Substance: ATORVASTATIN
     Dosage: 20.0MG UNKNOWN
  11. HUMULIN N [Concomitant]
     Active Substance: INSULIN HUMAN
     Dosage: 100 UNIT/ML
     Dates: start: 20140811
  12. NEXIUM [Suspect]
     Active Substance: ESOMEPRAZOLE MAGNESIUM
     Indication: PEPTIC ULCER
     Dosage: 40 MG
     Route: 048
     Dates: start: 2011, end: 2016
  13. PROMETHAZINE [Concomitant]
     Active Substance: PROMETHAZINE HYDROCHLORIDE
     Dates: start: 20140811
  14. SEROQUEL [Concomitant]
     Active Substance: QUETIAPINE FUMARATE
  15. CONSTULOSE [Concomitant]
     Active Substance: LACTULOSE
     Dates: start: 20160701
  16. FLOMAX [Concomitant]
     Active Substance: TAMSULOSIN HYDROCHLORIDE
     Dosage: EVERY MORNING
     Dates: start: 20140811
  17. ZESTRIL [Concomitant]
     Active Substance: LISINOPRIL
  18. PREDNISONE. [Concomitant]
     Active Substance: PREDNISONE
  19. NEXIUM [Suspect]
     Active Substance: ESOMEPRAZOLE MAGNESIUM
     Indication: PROPHYLAXIS AGAINST GASTROINTESTINAL ULCER
     Dosage: 40 MG
     Route: 048
     Dates: start: 2011, end: 2016
  20. NEXIUM [Suspect]
     Active Substance: ESOMEPRAZOLE MAGNESIUM
     Indication: PEPTIC ULCER
     Route: 048
     Dates: start: 20160115
  21. LEVOTHYROXINE. [Concomitant]
     Active Substance: LEVOTHYROXINE
     Dates: start: 20151231
  22. RENVELA [Concomitant]
     Active Substance: SEVELAMER CARBONATE
     Dosage: 800.0MG UNKNOWN
  23. ASPIRIN. [Concomitant]
     Active Substance: ASPIRIN
     Dosage: 81.0MG UNKNOWN
  24. ADVAIR HFA [Concomitant]
     Active Substance: FLUTICASONE PROPIONATE\SALMETEROL XINAFOATE
  25. NIFEDICAL XL [Concomitant]
     Active Substance: NIFEDIPINE
     Dates: start: 20140811
  26. CONSTULOSE [Concomitant]
     Active Substance: LACTULOSE
     Dates: start: 20160615
  27. NEXIUM [Suspect]
     Active Substance: ESOMEPRAZOLE MAGNESIUM
     Indication: GASTROOESOPHAGEAL REFLUX DISEASE
     Dosage: 40 MG
     Route: 048
     Dates: start: 2002
  28. NEXIUM [Suspect]
     Active Substance: ESOMEPRAZOLE MAGNESIUM
     Indication: GASTROOESOPHAGEAL REFLUX DISEASE
     Route: 048
     Dates: start: 20160115
  29. NEXIUM [Suspect]
     Active Substance: ESOMEPRAZOLE MAGNESIUM
     Indication: PROPHYLAXIS AGAINST GASTROINTESTINAL ULCER
     Route: 048
     Dates: start: 20160115
  30. MORPHINE [Concomitant]
     Active Substance: MORPHINE
     Dosage: 200.0MG UNKNOWN

REACTIONS (4)
  - Renal failure [Recovered/Resolved]
  - Acute kidney injury [Unknown]
  - Chronic kidney disease [Recovered/Resolved]
  - End stage renal disease [Unknown]
